FAERS Safety Report 13408661 (Version 4)
Quarter: 2022Q2

REPORT INFORMATION
  Report Type: Spontaneous
  Country: US (occurrence: US)
  Receive Date: 20170406
  Receipt Date: 20220510
  Transmission Date: 20220721
  Serious: No
  Sender: FDA-Public Use
  Company Number: US-JNJFOC-20161005761

PATIENT
  Sex: Male

DRUGS (5)
  1. RISPERDAL [Suspect]
     Active Substance: RISPERIDONE
     Indication: Bipolar disorder
     Route: 048
     Dates: start: 20030821, end: 20040129
  2. RISPERDAL [Suspect]
     Active Substance: RISPERIDONE
     Indication: Attention deficit hyperactivity disorder
     Route: 048
     Dates: start: 2004, end: 20040924
  3. RISPERDAL [Suspect]
     Active Substance: RISPERIDONE
     Route: 048
     Dates: end: 20050207
  4. RISPERIDONE [Suspect]
     Active Substance: RISPERIDONE
     Indication: Bipolar disorder
     Dosage: V2: VARYING DOSES OF 0.25 MG AND 0.5 MG.
     Route: 065
     Dates: start: 20040306, end: 2004
  5. RISPERIDONE [Suspect]
     Active Substance: RISPERIDONE
     Indication: Attention deficit hyperactivity disorder
     Dosage: VARYING DOSES OF 0.5 MG AND 0.25 MG
     Route: 065
     Dates: start: 20041009, end: 20060207

REACTIONS (3)
  - Emotional distress [Unknown]
  - Gynaecomastia [Recovering/Resolving]
  - Blood prolactin increased [Unknown]

NARRATIVE: CASE EVENT DATE: 20050101
